FAERS Safety Report 12677876 (Version 1)
Quarter: 2016Q3

REPORT INFORMATION
  Report Type: Report from Study
  Country: ES (occurrence: ES)
  Receive Date: 20160823
  Receipt Date: 20160823
  Transmission Date: 20161109
  Serious: Yes (Hospitalization, Other)
  Sender: FDA-Public Use
  Company Number: ES-MILLENNIUM-2014MPI000155

PATIENT
  Age: 78 Year
  Sex: Female
  Weight: 57 kg

DRUGS (3)
  1. IXAZOMIB [Suspect]
     Active Substance: IXAZOMIB
     Indication: PLASMA CELL MYELOMA
     Dosage: 4 MG, UNK
     Route: 048
     Dates: start: 20130225, end: 20140101
  2. PREDNISONE. [Suspect]
     Active Substance: PREDNISONE
     Indication: PLASMA CELL MYELOMA
     Dosage: 90 MG, UNK
     Route: 048
     Dates: start: 20130225, end: 20140102
  3. MELPHALAN [Suspect]
     Active Substance: MELPHALAN
     Indication: PLASMA CELL MYELOMA
     Dosage: 6 MG, UNK
     Route: 048
     Dates: start: 20130225, end: 20140102

REACTIONS (4)
  - Polyneuropathy [Recovering/Resolving]
  - Syncope [Recovered/Resolved]
  - Accidental overdose [Recovered/Resolved with Sequelae]
  - Neuralgia [Recovering/Resolving]

NARRATIVE: CASE EVENT DATE: 20131231
